FAERS Safety Report 5374679-4 (Version None)
Quarter: 2007Q2

REPORT INFORMATION
  Report Type: 
  Country: None (occurrence: None)
  Receive Date: 20070629
  Receipt Date: 20070622
  Transmission Date: 20071010
  Serious: Yes (Hospitalization)
  Sender: FDA-Public Use
  Company Number: US-AMGEN-US230954

PATIENT
  Sex: Female

DRUGS (3)
  1. ENBREL [Suspect]
     Indication: PSORIATIC ARTHROPATHY
     Route: 058
     Dates: start: 20030915
  2. ENBREL [Suspect]
     Indication: PSORIASIS
  3. ENBREL [Suspect]
     Indication: PUSTULAR PSORIASIS

REACTIONS (8)
  - HEADACHE [None]
  - INSOMNIA [None]
  - JOINT CREPITATION [None]
  - JOINT DISLOCATION [None]
  - NECK PAIN [None]
  - PSORIASIS [None]
  - PUSTULAR PSORIASIS [None]
  - ROAD TRAFFIC ACCIDENT [None]
